FAERS Safety Report 9494696 (Version 1)
Quarter: 2013Q3

REPORT INFORMATION
  Report Type: Spontaneous
  Country: US (occurrence: None)
  Receive Date: 20130830
  Receipt Date: 20130830
  Transmission Date: 20140515
  Serious: Yes (Disabling, Other)
  Sender: FDA-Public Use
  Company Number: None

PATIENT
  Age: 37 Year
  Sex: Male
  Weight: 122.47 kg

DRUGS (1)
  1. LIDOCAINE/PRILOCAINE 2.5/2.5% FONGERA [Suspect]
     Indication: PRURITUS
     Dosage: CREAM TWICE DAILY APPLIED TO A SURGACE USUALLY THE SKIN
     Route: 061
     Dates: start: 20130829, end: 20130829

REACTIONS (4)
  - Drug ineffective [None]
  - Pruritus [None]
  - Product container seal issue [None]
  - Failure of child resistant mechanism for pharmaceutical product [None]
